FAERS Safety Report 20763262 (Version 1)
Quarter: 2022Q2

REPORT INFORMATION
  Report Type: Spontaneous
  Country: US (occurrence: US)
  Receive Date: 20220428
  Receipt Date: 20220428
  Transmission Date: 20220721
  Serious: Yes (Other)
  Sender: FDA-Public Use
  Company Number: US-VELOXIS PHARMACEUTICALS-2022VELUS-000289

PATIENT
  Age: 61 Year
  Sex: Male

DRUGS (9)
  1. TACROLIMUS [Suspect]
     Active Substance: TACROLIMUS
     Indication: Prophylaxis against transplant rejection
     Dosage: UNK
  2. CIPROFLOXACIN [Suspect]
     Active Substance: CIPROFLOXACIN
     Indication: Antibiotic therapy
     Dosage: UNK, X4 MONTHS
     Route: 048
     Dates: start: 201908, end: 201911
  3. CEFTRIAXONE [Suspect]
     Active Substance: CEFTRIAXONE
     Indication: Antibiotic therapy
     Dosage: UNK, X 1 WEEK
     Route: 042
     Dates: start: 201907
  4. DOXYCYCLINE [Suspect]
     Active Substance: DOXYCYCLINE
     Indication: Antibiotic therapy
     Dosage: UNK, X2WEEKS
     Route: 048
     Dates: start: 201906
  5. CEFPODOXIME [Suspect]
     Active Substance: CEFPODOXIME
     Indication: Antibiotic therapy
     Dosage: UNK, 2 WEEKS
     Route: 048
     Dates: start: 201906
  6. LINEZOLID [Suspect]
     Active Substance: LINEZOLID
     Indication: Antibiotic therapy
     Dosage: UNK, X4 MONTHS
     Route: 048
     Dates: start: 201908, end: 201911
  7. AZITHROMYCIN [Suspect]
     Active Substance: AZITHROMYCIN
     Indication: Antibiotic therapy
     Dosage: UNK, X1 MONTH
     Route: 048
     Dates: start: 202001
  8. CLOFAZIMINE [Suspect]
     Active Substance: CLOFAZIMINE
     Indication: Antibiotic therapy
     Dosage: UNK
     Route: 048
  9. TIGECYCLINE [Suspect]
     Active Substance: TIGECYCLINE
     Indication: Antibiotic therapy
     Dosage: UNK
     Route: 042

REACTIONS (8)
  - Disease recurrence [Recovered/Resolved]
  - Mycobacterial infection [Recovered/Resolved]
  - Mycobacterium chelonae infection [Recovered/Resolved]
  - Abdominal wall abscess [Recovered/Resolved]
  - Chest wall abscess [Recovered/Resolved]
  - Pancytopenia [Unknown]
  - Diarrhoea [Unknown]
  - Off label use [Unknown]
